FAERS Safety Report 21468473 (Version 1)
Quarter: 2022Q4

REPORT INFORMATION
  Report Type: Spontaneous
  Country: US (occurrence: None)
  Receive Date: 20221017
  Receipt Date: 20221017
  Transmission Date: 20230113
  Serious: Yes (Death)
  Sender: FDA-Public Use
  Company Number: None

PATIENT
  Age: 3 Year
  Sex: Female

DRUGS (1)
  1. AMBRISENTAN [Suspect]
     Active Substance: AMBRISENTAN
     Indication: Pulmonary arterial hypertension
     Dosage: FREQUENCY : DAILY;?
     Route: 048
     Dates: start: 20220917, end: 20221014

REACTIONS (4)
  - Cardiac procedure complication [None]
  - Procedural haemorrhage [None]
  - Complication associated with device [None]
  - Cardio-respiratory arrest [None]

NARRATIVE: CASE EVENT DATE: 20221014
